FAERS Safety Report 23488952 (Version 1)
Quarter: 2024Q1

REPORT INFORMATION
  Report Type: Spontaneous
  Country: US (occurrence: US)
  Receive Date: 20240206
  Receipt Date: 20240206
  Transmission Date: 20240410
  Serious: No
  Sender: FDA-Public Use
  Company Number: US-GALDERMA-US2024000030

PATIENT

DRUGS (1)
  1. TWYNEO [Suspect]
     Active Substance: BENZOYL PEROXIDE\TRETINOIN
     Indication: Product used for unknown indication
     Dosage: 1 DOSAGE FORM, 30 G
     Route: 061

REACTIONS (3)
  - Dry skin [Not Recovered/Not Resolved]
  - Product colour issue [Recovered/Resolved]
  - Poor quality product administered [Recovered/Resolved]
